FAERS Safety Report 7503819-3 (Version None)
Quarter: 2011Q2

REPORT INFORMATION
  Report Type: 
  Country: None (occurrence: None)
  Receive Date: 20110401
  Receipt Date: 20100323
  Transmission Date: 20111010
  Serious: Yes (Hospitalization, Other)
  Sender: FDA-Public Use
  Company Number: 228455USA

PATIENT
  Age: 62 Year
  Sex: Female

DRUGS (1)
  1. IPRATROPIUM BROMIDE [Suspect]
     Indication: DYSPNOEA
     Dosage: (2.5 MICROLITRE), RESPIRATORY (INHALATION)
     Route: 055
     Dates: start: 19830101, end: 20100320

REACTIONS (3)
  - DRUG HYPERSENSITIVITY [None]
  - DYSPNOEA [None]
  - LOSS OF CONSCIOUSNESS [None]
